FAERS Safety Report 6727522-2 (Version None)
Quarter: 2010Q2

REPORT INFORMATION
  Report Type: 
  Country: None (occurrence: None)
  Receive Date: 20100512
  Receipt Date: 20100303
  Transmission Date: 20101027
  Serious: No
  Sender: FDA-Public Use
  Company Number: 1000012269

PATIENT
  Age: 46 Year
  Sex: Female

DRUGS (2)
  1. SAVELLA [Suspect]
     Indication: ANXIETY
     Dosage: 12.5 MG (12.5 MG, 1 IN 1 D), ORAL
     Route: 048
     Dates: start: 20100122, end: 20100128
  2. SAVELLA [Suspect]
     Indication: ANXIETY
     Dosage: 25 MG (25 MG, 1 IN 1 D), ORAL
     Route: 048
     Dates: start: 20100129, end: 20100216

REACTIONS (5)
  - AFFECT LABILITY [None]
  - ANXIETY [None]
  - DIZZINESS [None]
  - INSOMNIA [None]
  - PALPITATIONS [None]
